FAERS Safety Report 15675602 (Version 2)
Quarter: 2018Q4

REPORT INFORMATION
  Report Type: Spontaneous
  Country: US (occurrence: US)
  Receive Date: 20181130
  Receipt Date: 20181203
  Transmission Date: 20190205
  Serious: Yes (Hospitalization)
  Sender: FDA-Public Use
  Company Number: US-SAKK-2018SA326115AA

PATIENT
  Age: 33 Year
  Sex: Male

DRUGS (5)
  1. CLOPIDOGREL BISULFATE. [Suspect]
     Active Substance: CLOPIDOGREL BISULFATE
     Indication: ANTIPLATELET THERAPY
  2. SEVELAMER CARBONATE. [Suspect]
     Active Substance: SEVELAMER CARBONATE
  3. ACETYLSALICYLIC ACID [Suspect]
     Active Substance: ASPIRIN
     Indication: CORONARY ARTERY DISEASE
  4. ACETYLSALICYLIC ACID [Suspect]
     Active Substance: ASPIRIN
     Indication: ANTIPLATELET THERAPY
  5. CLOPIDOGREL BISULFATE. [Suspect]
     Active Substance: CLOPIDOGREL BISULFATE
     Indication: CORONARY ARTERY DISEASE

REACTIONS (5)
  - Mucous stools [Recovered/Resolved]
  - Pain [Unknown]
  - Haematochezia [Recovered/Resolved]
  - Rectal ulcer [Recovered/Resolved]
  - Tenderness [Unknown]
